FAERS Safety Report 9786090 (Version 1)
Quarter: 2013Q4

REPORT INFORMATION
  Report Type: Spontaneous
  Country: US (occurrence: None)
  Receive Date: 20131224
  Receipt Date: 20131224
  Transmission Date: 20140711
  Serious: Yes (Death)
  Sender: FDA-Public Use
  Company Number: 2079968

PATIENT
  Age: 88 Year
  Sex: Female

DRUGS (4)
  1. AMIODARONE [Suspect]
     Indication: ATRIAL FIBRILLATION
     Route: 042
  2. SERTRALINE [Concomitant]
  3. LEVOTHYROXINE [Concomitant]
  4. LISINOPRIL [Concomitant]

REACTIONS (8)
  - Dyspnoea [None]
  - Palpitations [None]
  - Fatigue [None]
  - Left ventricular failure [None]
  - Drug-induced liver injury [None]
  - Oedema [None]
  - Respiratory failure [None]
  - Renal failure [None]
